FAERS Safety Report 5322363-5 (Version None)
Quarter: 2007Q2

REPORT INFORMATION
  Report Type: 
  Country: None (occurrence: None)
  Receive Date: 20070511
  Receipt Date: 20070507
  Transmission Date: 20071010
  Serious: Yes (Other)
  Sender: FDA-Public Use
  Company Number: US-ASTRAZENECA-2007UW10931

PATIENT
  Age: 50 Year
  Sex: Female

DRUGS (6)
  1. SEROQUEL [Suspect]
     Indication: MAJOR DEPRESSION
     Route: 048
     Dates: start: 20070328, end: 20070503
  2. SEROQUEL [Suspect]
     Route: 048
     Dates: start: 20070504
  3. SEROQUEL [Suspect]
     Route: 048
  4. SEROQUEL [Suspect]
     Route: 048
  5. ZOLOFT [Concomitant]
  6. WELLBUTRIN [Concomitant]

REACTIONS (3)
  - DYSTONIA [None]
  - GAIT DISTURBANCE [None]
  - TREMOR [None]
